FAERS Safety Report 25900670 (Version 1)
Quarter: 2025Q4

REPORT INFORMATION
  Report Type: Spontaneous
  Country: US (occurrence: US)
  Receive Date: 20251009
  Receipt Date: 20251009
  Transmission Date: 20260117
  Serious: No
  Sender: ASTELLAS
  Company Number: US-ASTELLAS-2025-AER-054181

PATIENT
  Age: 88 Year
  Sex: Female

DRUGS (1)
  1. MYRBETRIQ [Suspect]
     Active Substance: MIRABEGRON
     Indication: Bladder disorder
     Route: 065
     Dates: start: 202509

REACTIONS (3)
  - Contusion [Unknown]
  - Somnambulism [Unknown]
  - Fall [Unknown]

NARRATIVE: CASE EVENT DATE: 20250929
